FAERS Safety Report 5637055-2 (Version None)
Quarter: 2008Q1

REPORT INFORMATION
  Report Type: 
  Country: None (occurrence: None)
  Receive Date: 20080225
  Receipt Date: 20070725
  Transmission Date: 20080703
  Serious: No
  Sender: FDA-Public Use
  Company Number: US-BRISTOL-MYERS SQUIBB COMPANY-13858212

PATIENT
  Age: 24 Year
  Sex: Female

DRUGS (3)
  1. METFORMIN HCL [Suspect]
  2. CLOMIPHENE CITRATE [Concomitant]
  3. FEMARA [Concomitant]

REACTIONS (1)
  - INFERTILITY [None]
